FAERS Safety Report 7108703-5 (Version None)
Quarter: 2010Q4

REPORT INFORMATION
  Report Type: 
  Country: None (occurrence: None)
  Receive Date: 20101117
  Receipt Date: 20100820
  Transmission Date: 20110411
  Serious: Yes (Life-Threatening, Other)
  Sender: FDA-Public Use
  Company Number: CO-SANOFI-AVENTIS-2010SA025245

PATIENT
  Age: 73 Year
  Sex: Female
  Weight: 95 kg

DRUGS (9)
  1. CLEXANE [Suspect]
     Dosage: 40MG AND 60MG
     Route: 058
     Dates: start: 20100426
  2. CLEXANE [Suspect]
     Indication: ACUTE CORONARY SYNDROME
     Dosage: 40MG AND 60MG
     Route: 058
     Dates: start: 20100426
  3. CLEXANE [Suspect]
     Dosage: 40MG AND 60MG
     Route: 058
     Dates: start: 20100426
  4. CLEXANE [Suspect]
     Dosage: 40MG AND 60MG
     Route: 058
     Dates: start: 20100426
  5. PLAVIX [Concomitant]
     Indication: ACUTE CORONARY SYNDROME
     Route: 048
     Dates: start: 20100426
  6. PLAVIX [Concomitant]
  7. ASPIRIN [Concomitant]
     Indication: ACUTE CORONARY SYNDROME
     Route: 048
     Dates: start: 20100426
  8. METOPROLOL [Concomitant]
  9. LOVASTATIN [Concomitant]

REACTIONS (3)
  - DRUG INEFFECTIVE [None]
  - IN-STENT CORONARY ARTERY RESTENOSIS [None]
  - PRODUCT QUALITY ISSUE [None]
